FAERS Safety Report 10231250 (Version 1)
Quarter: 2014Q2

REPORT INFORMATION
  Report Type: Spontaneous
  Country: US (occurrence: None)
  Receive Date: 20140506
  Receipt Date: 20140506
  Transmission Date: 20141212
  Serious: Yes (Other)
  Sender: FDA-Public Use
  Company Number: 1292928

PATIENT
  Age: 52 Year
  Sex: Female

DRUGS (2)
  1. BEVACIZUMAB (BEVACIZUMAB) [Suspect]
     Indication: OLIGODENDROGLIOMA
  2. TEMOZOLOMIDE (TEMOZOLOMIDE) [Concomitant]

REACTIONS (1)
  - Ischaemic stroke [None]
